FAERS Safety Report 7150899-3 (Version None)
Quarter: 2010Q4

REPORT INFORMATION
  Report Type: 
  Country: None (occurrence: None)
  Receive Date: 20101210
  Receipt Date: 20101203
  Transmission Date: 20110411
  Serious: Yes (Other)
  Sender: FDA-Public Use
  Company Number: JP-AMGEN-JPNCT2010008434

PATIENT

DRUGS (2)
  1. PANITUMUMAB [Suspect]
     Indication: COLORECTAL CANCER
     Dosage: 300 MG, Q2WK
     Route: 041
     Dates: start: 20101111
  2. IRINOTECAN HYDROCHLORIDE [Concomitant]
     Indication: COLORECTAL CANCER
     Route: 041
     Dates: start: 20101111

REACTIONS (2)
  - PLATELET COUNT DECREASED [None]
  - WHITE BLOOD CELL COUNT DECREASED [None]
